FAERS Safety Report 21659583 (Version 2)
Quarter: 2023Q1

REPORT INFORMATION
  Report Type: Report from Study
  Country: US (occurrence: US)
  Receive Date: 20221129
  Receipt Date: 20230110
  Transmission Date: 20230418
  Serious: Yes (Other)
  Sender: FDA-Public Use
  Company Number: US-MALLINCKRODT-T202205205

PATIENT
  Sex: Male

DRUGS (3)
  1. CORTICOTROPIN [Suspect]
     Active Substance: CORTICOTROPIN
     Indication: Iridocyclitis
     Dosage: 80 UNITS, TWICE WEEKLY
     Route: 058
     Dates: start: 20220922, end: 2022
  2. CORTICOTROPIN [Suspect]
     Active Substance: CORTICOTROPIN
     Dosage: 40 UNITS, TWICE WEEKLY
     Route: 065
     Dates: start: 2022, end: 2022
  3. CORTICOTROPIN [Suspect]
     Active Substance: CORTICOTROPIN
     Dosage: 40 UNITS ONCE A WEEK
     Route: 065

REACTIONS (5)
  - Diabetes mellitus inadequate control [Recovering/Resolving]
  - Gait disturbance [Unknown]
  - Peripheral swelling [Not Recovered/Not Resolved]
  - Fluid retention [Unknown]
  - Blood pressure increased [Recovering/Resolving]

NARRATIVE: CASE EVENT DATE: 20220101
